FAERS Safety Report 7741954-5 (Version None)
Quarter: 2011Q3

REPORT INFORMATION
  Report Type: 
  Country: None (occurrence: None)
  Receive Date: 20110912
  Receipt Date: 20110902
  Transmission Date: 20111222
  Serious: Yes (Hospitalization)
  Sender: FDA-Public Use
  Company Number: US-JNJFOC-20110706643

PATIENT
  Sex: Male
  Weight: 68.04 kg

DRUGS (4)
  1. SANDOZ FENTANYL TRANSDERMAL SYSTEM [Suspect]
     Indication: CYSTITIS INTERSTITIAL
     Dosage: NDC#0781-7242-55
     Route: 062
     Dates: start: 20110101
  2. WARFARIN SODIUM [Concomitant]
     Dosage: AT NIGHT
     Route: 048
  3. PHENAZOPYRIDINE HCL TAB [Concomitant]
     Indication: BLADDER DISORDER
     Route: 048
  4. MORPHINE [Concomitant]
     Indication: BREAKTHROUGH PAIN
     Dosage: AS NEEDED
     Route: 048

REACTIONS (1)
  - CYSTITIS INTERSTITIAL [None]
